FAERS Safety Report 7438498-7 (Version None)
Quarter: 2011Q2

REPORT INFORMATION
  Report Type: 
  Country: None (occurrence: None)
  Receive Date: 20110426
  Receipt Date: 20110420
  Transmission Date: 20111010
  Serious: Yes (Other)
  Sender: FDA-Public Use
  Company Number: HR-B.I. PHARMACEUTICALS,INC./RIDGEFIELD-2011-AP-00230AP

PATIENT
  Age: 63 Year
  Sex: Female

DRUGS (4)
  1. SKOPRYL [Concomitant]
     Indication: HYPERTENSION
     Dosage: 10 MG
  2. XALATAN [Concomitant]
     Indication: OCULAR HYPERTENSION
     Dosage: 1 GTT DROP(S)
  3. TRUSOPT [Concomitant]
     Dosage: 3 DROPS PER DAY
  4. MOVALIS [Suspect]
     Indication: RHEUMATOID ARTHRITIS
     Dosage: 15 MG
     Dates: start: 20110315, end: 20110322

REACTIONS (2)
  - EYE SWELLING [None]
  - ABNORMAL SENSATION IN EYE [None]
